FAERS Safety Report 12581795 (Version 2)
Quarter: 2016Q3

REPORT INFORMATION
  Report Type: Spontaneous
  Country: BR (occurrence: BR)
  Receive Date: 20160722
  Receipt Date: 20160819
  Transmission Date: 20161109
  Serious: Yes (Hospitalization, Disabling, Other)
  Sender: FDA-Public Use
  Company Number: BR-AMGEN-BRASP2016093313

PATIENT
  Age: 52 Year
  Sex: Male

DRUGS (1)
  1. ENBREL [Suspect]
     Active Substance: ETANERCEPT
     Indication: PSORIASIS
     Dosage: 1 APPLICATION 50 MG/WEEK
     Route: 065
     Dates: start: 200811

REACTIONS (2)
  - Benign neoplasm of adrenal gland [Not Recovered/Not Resolved]
  - Quadriplegia [Not Recovered/Not Resolved]
